FAERS Safety Report 15591016 (Version 2)
Quarter: 2018Q4

REPORT INFORMATION
  Report Type: Report from Study
  Country: RO (occurrence: RO)
  Receive Date: 20181107
  Receipt Date: 20181211
  Transmission Date: 20190205
  Serious: Yes (Hospitalization, Other)
  Sender: FDA-Public Use
  Company Number: RO-GLAXOSMITHKLINE-RO2018176581

PATIENT
  Age: 70 Year
  Sex: Male
  Weight: 71 kg

DRUGS (10)
  1. PARACETAMOL [Concomitant]
     Active Substance: ACETAMINOPHEN
     Indication: MYOCARDIAL INFARCTION
     Dosage: 500 MG, 1D
     Route: 048
     Dates: start: 20180812, end: 20180826
  2. ASPACARDIN [Concomitant]
     Indication: CARDIOVASCULAR EVENT PROPHYLAXIS
     Dosage: 1 UNK, 1D
     Route: 048
     Dates: start: 20180812, end: 20180827
  3. CLEXANE [Concomitant]
     Active Substance: ENOXAPARIN SODIUM
     Indication: CARDIOVASCULAR EVENT PROPHYLAXIS
     Dosage: 6000 IU, 1D
     Route: 058
     Dates: start: 20180812, end: 20180826
  4. MEPOLIZUMAB [Suspect]
     Active Substance: MEPOLIZUMAB
     Indication: NASAL POLYPS
     Dosage: 100 MG, CYC
     Route: 058
     Dates: start: 20180328
  5. QUAMATEL [Concomitant]
     Active Substance: FAMOTIDINE
     Indication: GASTROINTESTINAL DISORDER PROPHYLAXIS
     Dosage: 20 MG, 1D
     Route: 042
     Dates: start: 20180812, end: 20180826
  6. SODIUM BICARBONATE. [Concomitant]
     Active Substance: SODIUM BICARBONATE
     Indication: MYOCARDIAL INFARCTION
     Dosage: 1000 ML, 1D
     Route: 042
     Dates: start: 20180812, end: 20180826
  7. ALINDOR [Concomitant]
     Indication: MYOCARDIAL INFARCTION
     Dosage: 500 MG, 1D
     Route: 048
     Dates: start: 20180812, end: 20180826
  8. SODIUM CHLORIDE 0.9% BOLUS [Concomitant]
     Indication: MYOCARDIAL INFARCTION
     Dosage: 500 ML, 1D
     Route: 042
     Dates: start: 20180812, end: 20180826
  9. ALGOCALMIN [Concomitant]
     Active Substance: METAMIZOLE SODIUM
     Indication: MYOCARDIAL INFARCTION
     Dosage: 1 UNK, 1D
     Route: 042
     Dates: start: 20180812, end: 20180826
  10. NITRONAL [Concomitant]
     Active Substance: NITROGLYCERIN
     Indication: MYOCARDIAL INFARCTION
     Dosage: 1 MG/ML, 1D
     Route: 042
     Dates: start: 20180812, end: 20180826

REACTIONS (7)
  - Angina pectoris [Recovered/Resolved]
  - Anaemia [Recovered/Resolved]
  - Myocardial infarction [Recovered/Resolved]
  - Myocardial ischaemia [Recovered/Resolved]
  - Mitral valve incompetence [Recovered/Resolved]
  - Coronary artery stenosis [Recovered/Resolved]
  - Cardiac failure congestive [Recovered/Resolved]

NARRATIVE: CASE EVENT DATE: 20180812
